FAERS Safety Report 7203186-9 (Version None)
Quarter: 2010Q4

REPORT INFORMATION
  Report Type: 
  Country: None (occurrence: None)
  Receive Date: 20101230
  Receipt Date: 20101221
  Transmission Date: 20110411
  Serious: Yes (Hospitalization)
  Sender: FDA-Public Use
  Company Number: ES-BIOGENIDEC-2010BI044478

PATIENT
  Age: 44 Year
  Sex: Male

DRUGS (7)
  1. TYSABRI [Suspect]
     Indication: MULTIPLE SCLEROSIS
     Route: 042
     Dates: start: 20080415
  2. ACETYLSALICYLIC ACID SRT [Concomitant]
  3. RAMIPRIL [Concomitant]
  4. SIMVASTATIN [Concomitant]
  5. FLUNITRAZEPAM [Concomitant]
  6. METOPROLOL [Concomitant]
  7. BIPERIDEN HYDROCHLORIDE TAB [Concomitant]

REACTIONS (1)
  - BIPOLAR DISORDER [None]
